FAERS Safety Report 10958845 (Version 2)
Quarter: 2015Q2

REPORT INFORMATION
  Report Type: Spontaneous
  Country: US (occurrence: US)
  Receive Date: 20150327
  Receipt Date: 20150524
  Transmission Date: 20150821
  Serious: No
  Sender: FDA-Public Use
  Company Number: US-JNJFOC-20141216314

PATIENT
  Sex: Male

DRUGS (2)
  1. MORPHINE [Concomitant]
     Active Substance: MORPHINE
     Indication: PAIN
     Dosage: 10 MG EVERY HOUR AS NEEDED
     Route: 048
  2. DURAGESIC [Suspect]
     Active Substance: FENTANYL
     Indication: ULCER
     Route: 062
     Dates: start: 201412

REACTIONS (1)
  - Abnormal loss of weight [Not Recovered/Not Resolved]

NARRATIVE: CASE EVENT DATE: 201412
